FAERS Safety Report 9197020 (Version 1)
Quarter: 2013Q1

REPORT INFORMATION
  Report Type: Spontaneous
  Country: US (occurrence: None)
  Receive Date: 20120709
  Receipt Date: 20120709
  Transmission Date: 20140127
  Serious: No
  Sender: FDA-Public Use
  Company Number: 2012HGS-003634

PATIENT
  Age: 46 Year
  Sex: Female
  Weight: 136.08 kg

DRUGS (5)
  1. BENLYSTA [Suspect]
     Indication: SYSTEMIC LUPUS ERYTHEMATOSUS
     Dosage: 1 IN 28 D, INTRAVENOUS DRIP
     Route: 041
     Dates: start: 20120322
  2. LYRICA (PREGABALIN) (PREGABALIN) [Concomitant]
  3. BENACAR (OLMESARTAN MEDOXOMIL) (OLMESARTAN MEDOXOMIL) [Concomitant]
  4. FLUOXETINE (FLUOXETINE HYDROCHLORIDE) (FLUOXETINE MEDOXOMIL) [Concomitant]
  5. HYDROXYYCLOR (HYDROXYCHLOROQUINE SULFATE) (HYDROXCHLOROQUINE SULFATE) [Concomitant]

REACTIONS (5)
  - Pain [None]
  - Swelling [None]
  - Hypoaesthesia [None]
  - Fatigue [None]
  - Dyspnoea [None]
